FAERS Safety Report 24279986 (Version 6)
Quarter: 2024Q4

REPORT INFORMATION
  Report Type: Spontaneous
  Country: US (occurrence: US)
  Receive Date: 20240904
  Receipt Date: 20241219
  Transmission Date: 20250115
  Serious: No
  Sender: BIOGEN
  Company Number: US-BIOGEN-2024BI01280045

PATIENT
  Sex: Male

DRUGS (3)
  1. PLEGRIDY [Suspect]
     Active Substance: PEGINTERFERON BETA-1A
     Indication: Multiple sclerosis
     Route: 050
     Dates: start: 20240814
  2. PLEGRIDY [Suspect]
     Active Substance: PEGINTERFERON BETA-1A
     Route: 050
     Dates: start: 20240829
  3. PLEGRIDY [Suspect]
     Active Substance: PEGINTERFERON BETA-1A
     Route: 050
     Dates: start: 20240912

REACTIONS (4)
  - Product dose omission issue [Unknown]
  - Cognitive disorder [Unknown]
  - Visual impairment [Unknown]
  - Multiple sclerosis [Unknown]

NARRATIVE: CASE EVENT DATE: 20240101
